FAERS Safety Report 4833583-8 (Version None)
Quarter: 2005Q4

REPORT INFORMATION
  Report Type: 
  Country: None (occurrence: None)
  Receive Date: 20051121
  Receipt Date: 20051111
  Transmission Date: 20060501
  Serious: Yes (Other)
  Sender: FDA-Public Use
  Company Number: JP-MERCK-0511USA02932

PATIENT
  Age: 78 Year
  Sex: Female
  Weight: 42 kg

DRUGS (10)
  1. PEPCID [Suspect]
     Route: 030
  2. VALSARTAN [Concomitant]
     Indication: HYPERTENSION
     Route: 065
  3. AZOSEMIDE [Concomitant]
     Indication: HYPERTENSION
     Route: 065
  4. ALLOPURINOL [Concomitant]
     Indication: HYPERURICAEMIA
     Route: 065
  5. DONEPEZIL HYDROCHLORIDE [Concomitant]
     Indication: COGNITIVE DISORDER
     Route: 065
  6. NITRODERM [Concomitant]
     Route: 065
  7. SEVOFLURANE [Concomitant]
     Route: 065
  8. VECURONIUM BROMIDE [Concomitant]
     Route: 065
  9. FENTANYL [Concomitant]
     Route: 065
  10. LIDOCAINE [Concomitant]
     Route: 065

REACTIONS (2)
  - CARDIOMYOPATHY [None]
  - VOMITING [None]
